FAERS Safety Report 8047446-0 (Version None)
Quarter: 2012Q1

REPORT INFORMATION
  Report Type: 
  Country: None (occurrence: None)
  Receive Date: 20120116
  Receipt Date: 20120109
  Transmission Date: 20120608
  Serious: Yes (Other)
  Sender: FDA-Public Use
  Company Number: IE-JNJFOC-20110900139

PATIENT
  Sex: Female
  Weight: 53 kg

DRUGS (5)
  1. PALIPERIDONE [Suspect]
     Indication: SCHIZOPHRENIA
     Dosage: START DATE: END OF JUN-2011
     Route: 030
  2. PROCYCLIDINE HYDROCHLORIDE 2MG TAB [Concomitant]
     Indication: PRODUCT USED FOR UNKNOWN INDICATION
     Route: 065
     Dates: end: 20111012
  3. PALIPERIDONE [Suspect]
     Dosage: MAINTENANCE DOSE
     Route: 030
     Dates: start: 20110609, end: 20110822
  4. PALIPERIDONE [Suspect]
     Dosage: START DATE: DAY 8
     Route: 030
  5. ATENOLOL [Concomitant]
     Indication: HYPERTENSION
     Route: 065

REACTIONS (3)
  - BLOOD PROLACTIN INCREASED [None]
  - MALAISE [None]
  - SLEEP DISORDER [None]
